FAERS Safety Report 10136352 (Version 1)
Quarter: 2014Q2

REPORT INFORMATION
  Report Type: Spontaneous
  Country: US (occurrence: None)
  Receive Date: 20140425
  Receipt Date: 20140425
  Transmission Date: 20141212
  Serious: Yes (Hospitalization)
  Sender: FDA-Public Use
  Company Number: UTC-047541

PATIENT
  Age: 69 Year
  Sex: Female

DRUGS (3)
  1. REMODULIN [Suspect]
     Indication: PULMONARY EMBOLISM
     Dosage: 1 IN 1 MIN.
     Route: 058
     Dates: start: 20140308
  2. WARFARIN (WARFARIN) [Concomitant]
  3. TRACLEER (BOSENTAN) [Concomitant]

REACTIONS (5)
  - Diarrhoea [None]
  - Dehydration [None]
  - Dyspnoea [None]
  - Chest discomfort [None]
  - Cold sweat [None]
